FAERS Safety Report 25456538 (Version 1)
Quarter: 2025Q2

REPORT INFORMATION
  Report Type: Spontaneous
  Country: IT (occurrence: IT)
  Receive Date: 20250619
  Receipt Date: 20250619
  Transmission Date: 20250716
  Serious: Yes (Death)
  Sender: RECORDATI
  Company Number: IT-RECORDATI RARE DISEASE INC.-2025004279

PATIENT
  Age: 70 Year
  Sex: Female

DRUGS (1)
  1. ENJAYMO [Suspect]
     Active Substance: SUTIMLIMAB-JOME
     Indication: Product used for unknown indication

REACTIONS (1)
  - Death [Fatal]
